FAERS Safety Report 23039191 (Version 2)
Quarter: 2023Q4

REPORT INFORMATION
  Report Type: Report from Study
  Country: IN (occurrence: IN)
  Receive Date: 20231006
  Receipt Date: 20231006
  Transmission Date: 20240110
  Serious: Yes (Other)
  Sender: FDA-Public Use
  Company Number: IN-BIOGEN-2023BI01229040

PATIENT
  Sex: Female
  Weight: 50.848 kg

DRUGS (2)
  1. PLEGRIDY [Suspect]
     Active Substance: PEGINTERFERON BETA-1A
     Indication: Product used for unknown indication
     Route: 050
     Dates: end: 2023
  2. PLEGRIDY [Suspect]
     Active Substance: PEGINTERFERON BETA-1A

REACTIONS (3)
  - Abortion missed [Recovered/Resolved]
  - Foetal growth abnormality [Recovered/Resolved]
  - Maternal exposure during pregnancy [Recovered/Resolved]

NARRATIVE: CASE EVENT DATE: 20230101
